FAERS Safety Report 8757875 (Version 1)
Quarter: 2012Q4

REPORT INFORMATION
  Report Type: 
  Country: AU (occurrence: AU)
  Receive Date: 20120828
  Receipt Date: 20120828
  Transmission Date: 20130627
  Serious: Yes (Hospitalization)
  Sender: FDA-Public Use
  Company Number: AU-SHIRE-SPV1-2012-00764

PATIENT
  Sex: Male

DRUGS (1)
  1. AGRYLIN [Suspect]
     Indication: PRODUCT USED FOR UNKNOWN INDICATION
     Dosage: UNK, Unknown
     Route: 065
     Dates: start: 201205

REACTIONS (1)
  - Myocarditis [Recovered/Resolved]
